FAERS Safety Report 5621034-5 (Version None)
Quarter: 2008Q1

REPORT INFORMATION
  Report Type: 
  Country: None (occurrence: None)
  Receive Date: 20080208
  Receipt Date: 20080129
  Transmission Date: 20080703
  Serious: Yes (Other)
  Sender: FDA-Public Use
  Company Number: US-PFIZER INC-2008009972

PATIENT
  Sex: Female

DRUGS (1)
  1. CHANTIX [Suspect]
     Dates: start: 20070101, end: 20070101

REACTIONS (2)
  - DYSGRAPHIA [None]
  - SPEECH DISORDER [None]
